FAERS Safety Report 9190447 (Version 1)
Quarter: 2013Q1

REPORT INFORMATION
  Report Type: Spontaneous
  Country: PL (occurrence: PL)
  Receive Date: 20130326
  Receipt Date: 20130326
  Transmission Date: 20140127
  Serious: Yes (Other)
  Sender: FDA-Public Use
  Company Number: PL-AMGEN-POLSP2013020891

PATIENT
  Age: 31 Year
  Sex: Female
  Weight: 65 kg

DRUGS (3)
  1. ENBREL [Suspect]
     Indication: PRODUCT USED FOR UNKNOWN INDICATION
     Dosage: 50 MG, WEEKLY
     Route: 058
     Dates: start: 20120803, end: 20120824
  2. METHOTREXATE SODIUM [Concomitant]
     Dosage: 25 MG, WEEKLY
     Route: 048
     Dates: start: 200707
  3. METYPRED                           /00049601/ [Concomitant]
     Dosage: 8 MG, UNK
     Route: 048
     Dates: start: 2009

REACTIONS (2)
  - Erythema [Recovered/Resolved]
  - Oedema [Recovered/Resolved]
